FAERS Safety Report 11153302 (Version 1)
Quarter: 2015Q2

REPORT INFORMATION
  Report Type: Spontaneous
  Country: US (occurrence: US)
  Receive Date: 20150601
  Receipt Date: 20150601
  Transmission Date: 20150821
  Serious: Yes (Hospitalization)
  Sender: FDA-Public Use
  Company Number: PHHY2015US062793

PATIENT
  Age: 22 Year
  Sex: Female

DRUGS (1)
  1. GABAPENTIN. [Suspect]
     Active Substance: GABAPENTIN
     Indication: COMPLEX REGIONAL PAIN SYNDROME
     Dosage: 800 MG, FOUR TIMES DAILY
     Route: 065

REACTIONS (6)
  - Myoclonus [Recovered/Resolved]
  - Pain in extremity [Recovered/Resolved]
  - Acute kidney injury [Recovered/Resolved]
  - Hallucination, visual [Recovered/Resolved]
  - Muscle spasms [Recovered/Resolved]
  - Hallucination, auditory [Recovered/Resolved]
